FAERS Safety Report 6421350-3 (Version None)
Quarter: 2009Q4

REPORT INFORMATION
  Report Type: 
  Country: None (occurrence: None)
  Receive Date: 20091030
  Receipt Date: 20091016
  Transmission Date: 20100525
  Serious: Yes (Other)
  Sender: FDA-Public Use
  Company Number: PHHY2009ES44720

PATIENT
  Age: 67 Year
  Sex: Female

DRUGS (2)
  1. ZOMETA [Suspect]
     Indication: MULTIPLE MYELOMA
     Dosage: 4MG EV EVERY 4 WEEKS
     Dates: start: 20071201
  2. CORTICOSTEROIDS [Concomitant]

REACTIONS (5)
  - BONE DISORDER [None]
  - DEBRIDEMENT [None]
  - INFECTION [None]
  - OSTEONECROSIS [None]
  - PAIN IN JAW [None]
